FAERS Safety Report 19740408 (Version 2)
Quarter: 2021Q3

REPORT INFORMATION
  Report Type: Report from Study
  Country: US (occurrence: US)
  Receive Date: 20210824
  Receipt Date: 20210922
  Transmission Date: 20211014
  Serious: Yes (Hospitalization, Other)
  Sender: FDA-Public Use
  Company Number: US-TAKEDA-2021TUS052415

PATIENT
  Sex: Male
  Weight: 109.57 kg

DRUGS (2)
  1. BRIGATINIB [Suspect]
     Active Substance: BRIGATINIB
     Indication: LUNG NEOPLASM MALIGNANT
     Dosage: 90 MILLIGRAM, QD
     Route: 048
  2. BRIGATINIB [Suspect]
     Active Substance: BRIGATINIB
     Dosage: 180 MILLIGRAM, QD
     Route: 048
     Dates: start: 20210717

REACTIONS (6)
  - Skin discolouration [Unknown]
  - Blood potassium increased [Recovering/Resolving]
  - Haemoptysis [Unknown]
  - Contusion [Unknown]
  - Dizziness [Unknown]
  - Loss of consciousness [Unknown]
